FAERS Safety Report 8088971-6 (Version None)
Quarter: 2012Q1

REPORT INFORMATION
  Report Type: 
  Country: None (occurrence: None)
  Receive Date: 20120128
  Receipt Date: 20110624
  Transmission Date: 20120608
  Serious: No
  Sender: FDA-Public Use
  Company Number: US-ABBOTT-11P-163-0834397-00

PATIENT
  Sex: Male
  Weight: 83.082 kg

DRUGS (2)
  1. HUMIRA [Suspect]
     Indication: CROHN'S DISEASE
     Route: 058
     Dates: start: 20080101, end: 20080101
  2. HUMIRA [Suspect]
     Route: 058
     Dates: start: 20110621

REACTIONS (4)
  - INCREASED TENDENCY TO BRUISE [None]
  - SKIN HAEMORRHAGE [None]
  - WEIGHT INCREASED [None]
  - FATIGUE [None]
